FAERS Safety Report 14201954 (Version 1)
Quarter: 2017Q4

REPORT INFORMATION
  Report Type: Spontaneous
  Country: GB (occurrence: GB)
  Receive Date: 20171117
  Receipt Date: 20171117
  Transmission Date: 20180321
  Serious: Yes (Other)
  Sender: FDA-Public Use
  Company Number: GB-ABBVIE-17P-167-2162255-00

PATIENT
  Age: 59 Year
  Sex: Male

DRUGS (1)
  1. MAVIRET [Suspect]
     Active Substance: GLECAPREVIR\PIBRENTASVIR
     Indication: HEPATITIS C
     Dosage: 100/40MG
     Route: 048

REACTIONS (4)
  - Haemophilic arthropathy [Unknown]
  - Product use complaint [Unknown]
  - Disability [Unknown]
  - Musculoskeletal deformity [Unknown]
